FAERS Safety Report 25468201 (Version 1)
Quarter: 2025Q2

REPORT INFORMATION
  Report Type: Spontaneous
  Country: CH (occurrence: CH)
  Receive Date: 20250623
  Receipt Date: 20250623
  Transmission Date: 20250717
  Serious: Yes (Hospitalization)
  Sender: ABBVIE
  Company Number: CH-ABBVIE-6338227

PATIENT
  Age: 94 Year
  Sex: Male
  Weight: 67 kg

DRUGS (12)
  1. SILODOSIN [Suspect]
     Active Substance: SILODOSIN
     Indication: Benign prostatic hyperplasia
     Route: 048
     Dates: end: 20250410
  2. CANDESARTAN [Suspect]
     Active Substance: CANDESARTAN
     Indication: Hypertension
     Route: 048
     Dates: end: 20250410
  3. ELIQUIS [Concomitant]
     Active Substance: APIXABAN
     Indication: Atrial fibrillation
     Dosage: START DATE UNKNOWN?.
     Route: 048
  4. SERETIDE [Concomitant]
     Active Substance: FLUTICASONE PROPIONATE\SALMETEROL XINAFOATE
     Indication: Asthma
     Dosage: START DATE UNKNOWN?(50MCG/250 MCG)
     Route: 055
  5. Prostaplant f [Concomitant]
     Indication: Benign prostatic hyperplasia
     Dosage: START DATE UNKNOWN
     Route: 048
     Dates: end: 20250410
  6. ESCITALOPRAM OXALATE [Suspect]
     Active Substance: ESCITALOPRAM OXALATE
     Indication: Product used for unknown indication
     Dosage: 10 MILLIGRAM START DATE UNKNOWN
     Route: 048
     Dates: end: 20250411
  7. ESCITALOPRAM OXALATE [Suspect]
     Active Substance: ESCITALOPRAM OXALATE
     Indication: Product used for unknown indication
     Route: 048
     Dates: end: 20250412
  8. AMLODIPINE BESYLATE [Suspect]
     Active Substance: AMLODIPINE BESYLATE
     Indication: Hypertension
     Dosage: START DATE UNKNOWN
     Route: 048
  9. Metamucil N orange [Concomitant]
     Indication: Product used for unknown indication
     Dosage: START DATE UNKNOWN
     Route: 038
  10. ATORVASTATIN CALCIUM [Concomitant]
     Active Substance: ATORVASTATIN CALCIUM
     Indication: Coronary artery disease
     Dosage: START DATE UNKNOWN
     Route: 048
  11. NEBIVOLOL HYDROCHLORIDE [Suspect]
     Active Substance: NEBIVOLOL HYDROCHLORIDE
     Indication: Hypertension
     Dosage: START DATE UNKNOWN ? 5 MILLIGRAM, Q12H
     Route: 048
     Dates: end: 20250410
  12. HALCION [Suspect]
     Active Substance: TRIAZOLAM
     Indication: Sleep disorder
     Route: 048
     Dates: end: 20250410

REACTIONS (2)
  - Blood pressure orthostatic decreased [Recovering/Resolving]
  - Fall [Recovering/Resolving]

NARRATIVE: CASE EVENT DATE: 20250410
